FAERS Safety Report 24463327 (Version 1)
Quarter: 2024Q4

REPORT INFORMATION
  Report Type: Report from Study
  Country: US (occurrence: US)
  Receive Date: 20241018
  Receipt Date: 20241018
  Transmission Date: 20250114
  Serious: No
  Sender: ROCHE
  Company Number: US-ROCHE-2820862

PATIENT
  Age: 46 Year
  Sex: Female

DRUGS (13)
  1. XOLAIR [Suspect]
     Active Substance: OMALIZUMAB
     Indication: Cardiovascular disorder
     Route: 058
  2. XOLAIR [Suspect]
     Active Substance: OMALIZUMAB
     Indication: Infection
     Route: 058
  3. XOLAIR [Suspect]
     Active Substance: OMALIZUMAB
     Indication: Vasculitis
  4. XOLAIR [Suspect]
     Active Substance: OMALIZUMAB
     Indication: Arteritis
  5. XOLAIR [Suspect]
     Active Substance: OMALIZUMAB
     Indication: Vasculitis necrotising
  6. XOLAIR [Suspect]
     Active Substance: OMALIZUMAB
     Indication: Cutaneous vasculitis
  7. XOLAIR [Suspect]
     Active Substance: OMALIZUMAB
     Indication: Seasonal allergy
  8. XOLAIR [Suspect]
     Active Substance: OMALIZUMAB
     Indication: Asthma
  9. EUTHYROX [Concomitant]
     Active Substance: LEVOTHYROXINE SODIUM
  10. HYDROCHLOROTHIAZIDE [Concomitant]
     Active Substance: HYDROCHLOROTHIAZIDE
  11. LISINOPRIL [Concomitant]
     Active Substance: LISINOPRIL
  12. NAPROXEN [Concomitant]
     Active Substance: NAPROXEN
  13. PANTOPRAZOLE [Concomitant]
     Active Substance: PANTOPRAZOLE

REACTIONS (1)
  - Memory impairment [Unknown]
